FAERS Safety Report 23757457 (Version 1)
Quarter: 2024Q2

REPORT INFORMATION
  Report Type: Spontaneous
  Country: CA (occurrence: CA)
  Receive Date: 20240418
  Receipt Date: 20240418
  Transmission Date: 20240716
  Serious: Yes (Hospitalization)
  Sender: FDA-Public Use
  Company Number: CA-HLS-202400945

PATIENT
  Sex: Male
  Weight: 63 kg

DRUGS (21)
  1. BENZTROPINE MESYLATE [Suspect]
     Active Substance: BENZTROPINE MESYLATE
     Indication: Extrapyramidal disorder
     Dosage: 3 EVERY 1 DAYS
     Route: 030
  2. BENZTROPINE MESYLATE [Suspect]
     Active Substance: BENZTROPINE MESYLATE
     Indication: Extrapyramidal disorder
     Dosage: 3 EVERY 1 DAYS
     Route: 048
  3. BREXPIPRAZOLE [Concomitant]
     Active Substance: BREXPIPRAZOLE
     Indication: Psychiatric care
     Dosage: 1 EVERY 1 DAYS?AMOUNT: 1 MILLIGRAM
     Route: 048
  4. CLOZAPINE [Suspect]
     Active Substance: CLOZAPINE
     Indication: Product used for unknown indication
     Dosage: 1 EVERY 1 DAYS?AMOUNT: 100 MILLIGRAM?THERAPY DURATION: 69 DAYS
     Route: 048
  5. CLOZAPINE [Suspect]
     Active Substance: CLOZAPINE
     Indication: Psychiatric care
     Dosage: 1 EVERY 1 DAYS?AMOUNT: 100 MILLIGRAM?THERAPY DURATION: 69 DAYS
     Route: 048
  6. CLOZAPINE [Suspect]
     Active Substance: CLOZAPINE
     Indication: Product used for unknown indication
     Dosage: 1 EVERY 1 DAYS?AMOUNT: 2.5 ML?TABLETS DOSAGE FORM
     Route: 048
  7. CLOZAPINE [Suspect]
     Active Substance: CLOZAPINE
     Indication: Psychiatric care
     Dosage: 1 EVERY 1 DAYS?AMOUNT: 2.5 ML?TABLETS DOSAGE FORM
     Route: 048
  8. CLOZAPINE [Suspect]
     Active Substance: CLOZAPINE
     Indication: Product used for unknown indication
     Dosage: 1 EVERY 1 DAYS?AMOUNT: 75 MILLIGRAM
     Route: 048
  9. CLOZAPINE [Suspect]
     Active Substance: CLOZAPINE
     Indication: Psychiatric care
     Dosage: 1 EVERY 1 DAYS?AMOUNT: 75 MILLIGRAM
     Route: 048
  10. FLUVOXAMINE [Suspect]
     Active Substance: FLUVOXAMINE
     Indication: Psychiatric care
     Dosage: 1 EVERY 1 DAYS?AMOUNT: 12.5 MILLIGRAM
     Route: 048
  11. FLUVOXAMINE [Suspect]
     Active Substance: FLUVOXAMINE
     Indication: Psychiatric care
     Dosage: 1 EVERY 1 DAYS?AMOUNT: 50 MILLIGRAM
     Route: 048
  12. LORAZEPAM [Suspect]
     Active Substance: LORAZEPAM
     Indication: Agitation
     Dosage: 4 EVERY 1 DAYS?INJECTION DOSAGE FORM
     Route: 030
  13. LORAZEPAM [Suspect]
     Active Substance: LORAZEPAM
     Indication: Agitation
     Dosage: 4 EVERY 1 DAYS?NOT SPECIFIED DOSAGE FORM
     Route: 048
  14. LOXAPINE SUCCINATE [Suspect]
     Active Substance: LOXAPINE SUCCINATE
     Indication: Agitation
     Dosage: 4 EVERY 1 DAYS
     Route: 030
  15. LOXAPINE SUCCINATE [Suspect]
     Active Substance: LOXAPINE SUCCINATE
     Indication: Agitation
     Dosage: 4 EVERY 1 DAYS
     Route: 048
  16. POLYETHYLENE GLYCOL 3350 [Concomitant]
     Active Substance: POLYETHYLENE GLYCOL 3350
     Dosage: 1 EVERY 1 DAYS?AMOUNT: 17 GRAM
     Route: 048
  17. PROPRANOLOL HYDROCHLORIDE [Suspect]
     Active Substance: PROPRANOLOL HYDROCHLORIDE
     Indication: Product used for unknown indication
     Dosage: 2 EVERY 1 DAYS?AMOUNT: 10 MILLIGRAM
     Route: 048
  18. QUETIAPINE FUMARATE [Suspect]
     Active Substance: QUETIAPINE FUMARATE
     Indication: Psychiatric care
     Dosage: 1 EVERY 1 DAYS?AMOUNT: 100 MILLIGRAM
     Route: 048
  19. QUETIAPINE FUMARATE [Suspect]
     Active Substance: QUETIAPINE FUMARATE
     Indication: Psychiatric care
     Dosage: 1 EVERY 1 DAYS?AMOUNT: 400 MILLIGRAM
     Route: 048
  20. QUETIAPINE FUMARATE [Suspect]
     Active Substance: QUETIAPINE FUMARATE
     Indication: Psychiatric care
     Dosage: 1 EVERY 1 DAYS?AMOUNT: 450 MILLIGRAM
     Route: 048
  21. QUETIAPINE FUMARATE [Suspect]
     Active Substance: QUETIAPINE FUMARATE
     Indication: Psychiatric care
     Dosage: 1 EVERY 1 DAYS?AMOUNT: 500 MILLIGRAM
     Route: 048

REACTIONS (16)
  - Condition aggravated [None]
  - Confusional state [None]
  - Constipation [None]
  - Depression [None]
  - Drug interaction [None]
  - Drug level below therapeutic [None]
  - Drug level decreased [None]
  - Dysphemia [None]
  - Fatigue [None]
  - Hypoaesthesia [None]
  - Memory impairment [None]
  - Mental disorder [None]
  - Sedation [None]
  - Somnolence [None]
  - Thinking abnormal [None]
  - Treatment noncompliance [None]
